FAERS Safety Report 15543974 (Version 5)
Quarter: 2018Q4

REPORT INFORMATION
  Report Type: Spontaneous
  Country: JP (occurrence: JP)
  Receive Date: 20181023
  Receipt Date: 20181228
  Transmission Date: 20190205
  Serious: Yes (Hospitalization)
  Sender: FDA-Public Use
  Company Number: JP-PFIZER INC-2018428451

PATIENT
  Age: 42 Year
  Sex: Female
  Weight: 53 kg

DRUGS (4)
  1. FOSTOIN [Suspect]
     Active Substance: FOSPHENYTOIN SODIUM
     Dosage: 375 MG, 1X/DAY
     Dates: start: 20181214
  2. FOSTOIN [Suspect]
     Active Substance: FOSPHENYTOIN SODIUM
     Indication: STATUS EPILEPTICUS
     Dosage: 1125 MG, 1X/DAY
     Route: 041
     Dates: start: 20181012, end: 20181012
  3. FOSTOIN [Suspect]
     Active Substance: FOSPHENYTOIN SODIUM
     Dosage: 375 MG, 1X/DAY
     Dates: start: 20181213
  4. FOSTOIN [Suspect]
     Active Substance: FOSPHENYTOIN SODIUM
     Dosage: 375 MG, 2X/DAY
     Route: 041
     Dates: start: 20181013, end: 20181014

REACTIONS (1)
  - Blood creatine phosphokinase increased [Recovered/Resolved]

NARRATIVE: CASE EVENT DATE: 20181014
